FAERS Safety Report 10698049 (Version 3)
Quarter: 2015Q3

REPORT INFORMATION
  Report Type: Report from Study
  Country: FR (occurrence: FR)
  Receive Date: 20150108
  Receipt Date: 20150728
  Transmission Date: 20151125
  Serious: Yes (Hospitalization, Other)
  Sender: FDA-Public Use
  Company Number: FR-009507513-1501FRA001172

PATIENT
  Age: 40 Year
  Sex: Female
  Weight: 55 kg

DRUGS (6)
  1. PEMBROLIZUMAB. [Suspect]
     Active Substance: PEMBROLIZUMAB
     Dosage: TOTAL DAILY DOSE: 105 MG, STRENGTH: 2MG/KG, Q3W (EVERY 21 DAYS)
     Route: 042
  2. KEPPRA [Concomitant]
     Active Substance: LEVETIRACETAM
     Indication: PROPHYLAXIS
     Dosage: UNK
     Dates: start: 201305
  3. AEQUASYAL [Concomitant]
     Active Substance: CORN OIL, OXIDIZED
     Indication: APTYALISM
     Dosage: FREQUENCY: IF NEEDED 3 TIMES A DAY, PRN
     Route: 048
     Dates: start: 201502
  4. PEMBROLIZUMAB. [Suspect]
     Active Substance: PEMBROLIZUMAB
     Indication: MALIGNANT MELANOMA STAGE IV
     Dosage: TOTAL DAILY DOSE: 105 MG, STRENGTH: 2MG/KG, Q3W (EVERY 21 DAYS)
     Route: 042
     Dates: start: 20141119, end: 20141230
  5. LEVOTHYROX [Concomitant]
     Active Substance: LEVOTHYROXINE
     Indication: HYPOTHYROIDISM
     Dosage: UNK
     Dates: start: 2005
  6. INSULIN [Concomitant]
     Active Substance: INSULIN NOS
     Indication: DIABETES MELLITUS
     Dosage: ROUTE OF ADMINISTRATION: INSULIN PUMP
     Dates: start: 201412

REACTIONS (2)
  - Noninfective sialoadenitis [Unknown]
  - Type 1 diabetes mellitus [Unknown]

NARRATIVE: CASE EVENT DATE: 20141230
